FAERS Safety Report 9565085 (Version 1)
Quarter: 2013Q3

REPORT INFORMATION
  Report Type: Spontaneous
  Country: DE (occurrence: DE)
  Receive Date: 20130930
  Receipt Date: 20130930
  Transmission Date: 20140515
  Serious: Yes (Other)
  Sender: FDA-Public Use
  Company Number: DE-PFIZER INC-2013259340

PATIENT
  Age: 57 Year
  Sex: Male

DRUGS (2)
  1. XALATAN [Suspect]
     Dosage: UNK
     Dates: start: 201302
  2. TELFAST [Suspect]

REACTIONS (1)
  - Intraocular pressure increased [Unknown]
